FAERS Safety Report 14798551 (Version 1)
Quarter: 2018Q2

REPORT INFORMATION
  Report Type: Spontaneous
  Country: FR (occurrence: FR)
  Receive Date: 20180424
  Receipt Date: 20180424
  Transmission Date: 20180711
  Serious: Yes (Other)
  Sender: FDA-Public Use
  Company Number: FR-MERCK KGAA-2046351

PATIENT
  Sex: Female

DRUGS (1)
  1. NOVOTHYROX [Suspect]
     Active Substance: LEVOTHYROXINE SODIUM
     Indication: PRODUCT USED FOR UNKNOWN INDICATION

REACTIONS (22)
  - Hypertension [None]
  - Temperature intolerance [None]
  - Anxiety [None]
  - Amnesia [None]
  - Hypersensitivity [None]
  - Dizziness [None]
  - Hot flush [None]
  - Arthralgia [None]
  - Fatigue [None]
  - Palpitations [None]
  - Headache [None]
  - Insomnia [None]
  - Marital problem [None]
  - Social avoidant behaviour [None]
  - Blindness [None]
  - Alopecia [None]
  - Depression [None]
  - Dyspnoea [None]
  - Myalgia [None]
  - Dysphonia [None]
  - Memory impairment [None]
  - Pain [None]
